FAERS Safety Report 16123987 (Version 1)
Quarter: 2019Q1

REPORT INFORMATION
  Report Type: Spontaneous
  Country: CA (occurrence: CA)
  Receive Date: 20190327
  Receipt Date: 20190327
  Transmission Date: 20190418
  Serious: Yes (Hospitalization, Disabling)
  Sender: FDA-Public Use
  Company Number: CA-AMREGENT-20190321

PATIENT
  Age: 98 Year
  Sex: Female

DRUGS (5)
  1. ACEBUTOLOL [Concomitant]
     Active Substance: ACEBUTOLOL
     Dosage: 50 MG TWICE DAILY
     Route: 048
     Dates: start: 2019
  2. CANDESARTAN. [Concomitant]
     Active Substance: CANDESARTAN
     Dosage: 8 MG ONCE A DAY
     Route: 048
  3. VENOFER [Suspect]
     Active Substance: IRON SUCROSE
     Dosage: 100 MG DAILY FOR 5 DAYS
     Route: 042
     Dates: start: 20190211, end: 20190215
  4. CITALOPRAM [Concomitant]
     Active Substance: CITALOPRAM HYDROBROMIDE
     Dosage: 5 MG ONCE A DAY
     Route: 048
  5. DEXILANT [Concomitant]
     Active Substance: DEXLANSOPRAZOLE
     Dosage: 60 MG ONCE A DAY
     Route: 048

REACTIONS (4)
  - Peripheral swelling [Unknown]
  - Injection site induration [Unknown]
  - Off label use [Recovered/Resolved]
  - Thrombophlebitis superficial [Recovered/Resolved with Sequelae]

NARRATIVE: CASE EVENT DATE: 20190211
